FAERS Safety Report 8016367-1 (Version None)
Quarter: 2011Q4

REPORT INFORMATION
  Report Type: 
  Country: None (occurrence: None)
  Receive Date: 20111230
  Receipt Date: 20111219
  Transmission Date: 20120403
  Serious: Yes (Death, Other)
  Sender: FDA-Public Use
  Company Number: IT-CELGENEUS-083-50794-11070028

PATIENT
  Sex: Male

DRUGS (1)
  1. VIDAZA [Suspect]
     Dosage: 150 MILLIGRAM
     Route: 058
     Dates: end: 20110607

REACTIONS (3)
  - DEPRESSION [None]
  - COMPLETED SUICIDE [None]
  - ACUTE MYELOID LEUKAEMIA [None]
